FAERS Safety Report 11684634 (Version 1)
Quarter: 2015Q4

REPORT INFORMATION
  Report Type: Report from Study
  Country: US (occurrence: US)
  Receive Date: 20151029
  Receipt Date: 20151029
  Transmission Date: 20160304
  Serious: Yes (Other)
  Sender: FDA-Public Use
  Company Number: PHEH2015US021471

PATIENT
  Age: 50 Year
  Sex: Female

DRUGS (4)
  1. EXTAVIA [Suspect]
     Active Substance: INTERFERON BETA-1B
     Indication: MULTIPLE SCLEROSIS
     Dosage: 0.062 MG (0.25 ML), QOD
     Route: 058
     Dates: start: 20150617
  2. EXTAVIA [Suspect]
     Active Substance: INTERFERON BETA-1B
     Dosage: 0.125 MG (0.5 ML),QOD
     Route: 058
  3. EXTAVIA [Suspect]
     Active Substance: INTERFERON BETA-1B
     Dosage: 0.187 MG (0.75 ML), QOD
  4. EXTAVIA [Suspect]
     Active Substance: INTERFERON BETA-1B
     Dosage: 0.25 MG (1 ML), QOD
     Route: 058

REACTIONS (7)
  - Pyrexia [Unknown]
  - Gait disturbance [Unknown]
  - Grip strength decreased [Unknown]
  - Somnolence [Unknown]
  - Multiple sclerosis relapse [Unknown]
  - Spinal column stenosis [Unknown]
  - Fatigue [Unknown]

NARRATIVE: CASE EVENT DATE: 20151018
